FAERS Safety Report 24689309 (Version 3)
Quarter: 2024Q4

REPORT INFORMATION
  Report Type: Report from Study
  Country: CA (occurrence: CA)
  Receive Date: 20241203
  Receipt Date: 20241227
  Transmission Date: 20250114
  Serious: Yes (Other)
  Sender: CURRAX PHARMACEUTICALS
  Company Number: CA-BAUSCH-BL-2024-013262

PATIENT
  Sex: Female
  Weight: 68.98 kg

DRUGS (15)
  1. CONTRAVE [Suspect]
     Active Substance: BUPROPION HYDROCHLORIDE\NALTREXONE HYDROCHLORIDE
     Indication: Weight control
     Dosage: 90/8 MG, 1 TABLET QAM
     Route: 048
     Dates: start: 20240819, end: 20240825
  2. CONTRAVE [Suspect]
     Active Substance: BUPROPION HYDROCHLORIDE\NALTREXONE HYDROCHLORIDE
     Dosage: 90/8 MG, 1 TABLET QAM, 1 TABLET QPM
     Route: 048
     Dates: start: 20240826, end: 2024
  3. CONTRAVE [Suspect]
     Active Substance: BUPROPION HYDROCHLORIDE\NALTREXONE HYDROCHLORIDE
     Dosage: 90/8 MG, 2 TABLETS QAM, 1 TABLET QPM
     Route: 048
     Dates: start: 2024, end: 2024
  4. CONTRAVE [Suspect]
     Active Substance: BUPROPION HYDROCHLORIDE\NALTREXONE HYDROCHLORIDE
     Dosage: 90/8 MG, 4 TABLETS/DAY (2 DOSAGE FORMS,1 IN 12 HR)
     Route: 048
     Dates: start: 202409, end: 2024
  5. CONTRAVE [Suspect]
     Active Substance: BUPROPION HYDROCHLORIDE\NALTREXONE HYDROCHLORIDE
     Dosage: 90/8 MG, 1 TABLET/DAY
     Route: 048
     Dates: start: 20241117, end: 202411
  6. CONTRAVE [Suspect]
     Active Substance: BUPROPION HYDROCHLORIDE\NALTREXONE HYDROCHLORIDE
     Dosage: 90/8 MG, (2 TABS AM + 2 TABS PM)
     Route: 048
     Dates: start: 202411, end: 202411
  7. ISOSORBIDE DINITRATE [Suspect]
     Active Substance: ISOSORBIDE DINITRATE
     Indication: Blood pressure measurement
     Dosage: START DATE : EARLY 2000S (10 MG,1 IN 1 D)
     Route: 048
  8. SINGULAIR [Concomitant]
     Active Substance: MONTELUKAST SODIUM
     Indication: Respiratory symptom
     Dosage: START DATE: EARLY 2000S (10 MG,1 IN 1 D)
     Route: 048
  9. ALVESCO [Concomitant]
     Active Substance: CICLESONIDE
     Indication: Respiratory symptom
     Dosage: ROUTE: INHALER FREQUENCY: WINTER ONLY, START DATE: EARLY 2000S
     Route: 055
  10. FOLIC ACID [Concomitant]
     Active Substance: FOLIC ACID
     Indication: Haemolytic anaemia
     Dosage: UNK
     Route: 048
  11. CANDESARTAN [Concomitant]
     Active Substance: CANDESARTAN
     Indication: Glucose tolerance impaired
     Dosage: START DATE : EARLY 2000S (4 MG,1 IN 1 D)
     Route: 048
  12. MYRBETRIQ [Concomitant]
     Active Substance: MIRABEGRON
     Indication: Bladder disorder
     Dosage: START DATE : EARLY 2000S (50 MG,1 IN 1 D)
     Route: 048
  13. HYDRODIURIL [Concomitant]
     Active Substance: HYDROCHLOROTHIAZIDE
     Indication: Blood pressure measurement
     Dosage: START DATE : EARLY 2000S (12 MG,1 IN 1 D)
     Route: 048
  14. AMITRIPTYLINE [Concomitant]
     Active Substance: AMITRIPTYLINE
     Indication: Neuralgia
     Dosage: START DATE: LONG TIME (50 MG,1 IN 1 D)
     Route: 048
  15. PRAVASTATIN [Concomitant]
     Active Substance: PRAVASTATIN
     Indication: Blood cholesterol
     Dosage: START DATE : EARLY 2000S (20 MG,1 IN 1 D)
     Route: 048

REACTIONS (10)
  - Tooth loss [Unknown]
  - Food craving [Not Recovered/Not Resolved]
  - Dysarthria [Recovered/Resolved]
  - Memory impairment [Recovered/Resolved]
  - Adverse drug reaction [Unknown]
  - Disturbance in attention [Recovered/Resolved]
  - Feeling abnormal [Recovered/Resolved]
  - Tremor [Recovered/Resolved]
  - Product supply issue [Unknown]
  - Intentional underdose [Unknown]

NARRATIVE: CASE EVENT DATE: 20240101
